APPROVED DRUG PRODUCT: METHYLPHENIDATE HYDROCHLORIDE
Active Ingredient: METHYLPHENIDATE HYDROCHLORIDE
Strength: 10MG
Dosage Form/Route: TABLET, CHEWABLE;ORAL
Application: A205756 | Product #003 | TE Code: AB
Applicant: RISING PHARMA HOLDINGS INC
Approved: Nov 7, 2016 | RLD: No | RS: No | Type: RX